FAERS Safety Report 8144705-8 (Version None)
Quarter: 2012Q1

REPORT INFORMATION
  Report Type: 
  Country: None (occurrence: None)
  Receive Date: 20120214
  Receipt Date: 20120130
  Transmission Date: 20120608
  Serious: Yes (Hospitalization, Other)
  Sender: FDA-Public Use
  Company Number: MLL-2012-00002

PATIENT
  Age: 69 Year
  Sex: Male

DRUGS (4)
  1. SIMVASTATIN [Suspect]
     Dosage: 40MG DAILY
  2. CEFEPIME [Concomitant]
  3. DAPTOMYCIN [Suspect]
     Dosage: 900MG DAILY IV
     Route: 042
  4. VANCOMYCIN [Concomitant]

REACTIONS (2)
  - RHABDOMYOLYSIS [None]
  - DRUG INTERACTION [None]
